FAERS Safety Report 5192584-3 (Version None)
Quarter: 2006Q4

REPORT INFORMATION
  Report Type: 
  Country: None (occurrence: None)
  Receive Date: 20061220
  Receipt Date: 20061212
  Transmission Date: 20070319
  Serious: Yes (Death)
  Sender: FDA-Public Use
  Company Number: 163-21880-06120655

PATIENT
  Age: 76 Year
  Sex: Female

DRUGS (6)
  1. REVLIMID [Suspect]
     Indication: MYELODYSPLASTIC SYNDROME
     Dosage: 5 MG, 1 IN 1 D, ORAL
     Route: 048
     Dates: start: 20060611, end: 20060621
  2. DIFLUCAN [Concomitant]
  3. VALTREX [Concomitant]
  4. SYNTHROID [Concomitant]
  5. LORAZEPAM [Concomitant]
  6. LEVAQUIN [Concomitant]

REACTIONS (3)
  - BONE MARROW FAILURE [None]
  - FATIGUE [None]
  - THERAPY CESSATION [None]
